FAERS Safety Report 18066347 (Version 1)
Quarter: 2020Q3

REPORT INFORMATION
  Report Type: Spontaneous
  Country: CN (occurrence: CN)
  Receive Date: 20200724
  Receipt Date: 20200724
  Transmission Date: 20201103
  Serious: Yes (Hospitalization, Other)
  Sender: FDA-Public Use
  Company Number: CN-PFIZER INC-2020280959

PATIENT
  Age: 86 Year
  Sex: Female

DRUGS (9)
  1. SULPERAZON [Suspect]
     Active Substance: CEFOPERAZONE SODIUM\SULBACTAM SODIUM
     Indication: PNEUMONITIS
     Dosage: 3 G, 2X/DAY
     Route: 041
     Dates: start: 20200619, end: 20200627
  2. FLUCONAZOLE. [Suspect]
     Active Substance: FLUCONAZOLE
     Indication: ANTI-INFECTIVE THERAPY
     Dosage: UNK
     Dates: start: 20200627
  3. MOXIFLOXACIN HYDROCHLORIDE. [Suspect]
     Active Substance: MOXIFLOXACIN HYDROCHLORIDE
     Indication: PNEUMONITIS
     Dosage: 0.4 G, 1X/DAY
     Route: 041
     Dates: start: 20200622, end: 20200625
  4. BROMHEXINE HYDROCHLORIDE [Concomitant]
     Active Substance: BROMHEXINE HYDROCHLORIDE
     Indication: PNEUMONITIS
     Dosage: 4 MG, 3X/DAY
     Route: 042
     Dates: start: 20200619, end: 20200701
  5. LINEZOLID. [Suspect]
     Active Substance: LINEZOLID
     Indication: PNEUMONITIS
     Dosage: 0.6 MG, 2X/DAY
     Route: 041
     Dates: start: 20200621, end: 20200627
  6. BUDESONIDE. [Concomitant]
     Active Substance: BUDESONIDE
     Indication: PNEUMONITIS
     Dosage: 1 MG, 2X/DAY
     Dates: start: 20200619, end: 20200707
  7. DOXOFYLLINE [Concomitant]
     Active Substance: DOXOFYLLINE
     Indication: PNEUMONITIS
     Dosage: 0.2 G, 1X/DAY
     Route: 041
     Dates: start: 20200619, end: 20200707
  8. MEROPENEM. [Suspect]
     Active Substance: MEROPENEM
     Indication: PNEUMONITIS
     Dosage: 1 G, 2X/DAY
     Route: 041
     Dates: start: 20200627, end: 20200703
  9. MOXIFLOXACIN HYDROCHLORIDE. [Suspect]
     Active Substance: MOXIFLOXACIN HYDROCHLORIDE
     Indication: PNEUMONITIS
     Dosage: 0.4 G, 1X/DAY
     Route: 048
     Dates: start: 20200625, end: 20200626

REACTIONS (2)
  - Fungal infection [Not Recovered/Not Resolved]
  - Drug ineffective [Not Recovered/Not Resolved]

NARRATIVE: CASE EVENT DATE: 20200621
